FAERS Safety Report 5636219-1 (Version None)
Quarter: 2008Q1

REPORT INFORMATION
  Report Type: 
  Country: None (occurrence: None)
  Receive Date: 20080219
  Receipt Date: 20080201
  Transmission Date: 20080703
  Serious: Yes (Other)
  Sender: FDA-Public Use
  Company Number: SPV1-2008-00207

PATIENT
  Age: 18 Year
  Sex: Female

DRUGS (3)
  1. ADDERALL XR (AMPHETAMINE ASPARATE, AMPHETAMINE SULFATE, DEXTROAMPHETAM [Suspect]
     Indication: ATTENTION DEFICIT/HYPERACTIVITY DISORDER
     Dosage: 20 MG, 1X/DAY:QD; ORAL
     Route: 048
     Dates: start: 20080123, end: 20080128
  2. EFFEXOR /01233801/ (VENLAFAXINE) [Concomitant]
  3. MONCYCLINE (TETRACYCLINE HYDROCHLORIDE) [Concomitant]

REACTIONS (4)
  - FATIGUE [None]
  - HEART RATE INCREASED [None]
  - SENSATION OF HEAVINESS [None]
  - SOMNOLENCE [None]
